FAERS Safety Report 5860762-3 (Version None)
Quarter: 2008Q3

REPORT INFORMATION
  Report Type: 
  Country: None (occurrence: None)
  Receive Date: 20080827
  Receipt Date: 20080122
  Transmission Date: 20090109
  Serious: No
  Sender: FDA-Public Use
  Company Number: US-ABBOTT-07P-163-0424039-00

PATIENT
  Sex: Female
  Weight: 47.67 kg

DRUGS (13)
  1. COATED PDS [Suspect]
     Indication: BLOOD CHOLESTEROL INCREASED
     Route: 048
     Dates: start: 20071102
  2. COATED PDS [Suspect]
     Indication: LOW DENSITY LIPOPROTEIN INCREASED
  3. ROPINIROLE HYDROCHLORIDE [Concomitant]
     Indication: RESTLESS LEGS SYNDROME
     Route: 048
  4. CARB-LOVO [Concomitant]
     Indication: RESTLESS LEGS SYNDROME
     Route: 048
  5. CENTRUM SILVER [Concomitant]
     Indication: VITAMIN SUPPLEMENTATION
     Route: 048
  6. ZINC [Concomitant]
     Indication: DRUG USE FOR UNKNOWN INDICATION
     Route: 048
  7. SELENIUM [Concomitant]
     Indication: IMMUNE SYSTEM DISORDER
     Route: 048
  8. VITIS VINIFERA EXTRACT [Concomitant]
     Indication: CARDIOVASCULAR EVENT PROPHYLAXIS
     Route: 048
  9. FISH OIL [Concomitant]
     Indication: CARDIOVASCULAR EVENT PROPHYLAXIS
     Route: 048
  10. VIT B-50 FORMULA [Concomitant]
     Indication: VITAMIN SUPPLEMENTATION
     Route: 048
  11. CYANOCOBALAMIN-TANNIN COMPLEX [Concomitant]
     Indication: VITAMIN SUPPLEMENTATION
     Route: 048
  12. BOSWELLIN [Concomitant]
     Indication: ARTHRITIS
     Route: 048
  13. GLUCOSAMINE [Concomitant]
     Indication: ARTHRITIS
     Route: 048

REACTIONS (3)
  - BACK PAIN [None]
  - CHEST PAIN [None]
  - MUSCULOSKELETAL PAIN [None]
